FAERS Safety Report 4943201-6 (Version None)
Quarter: 2006Q1

REPORT INFORMATION
  Report Type: 
  Country: None (occurrence: None)
  Receive Date: 20060314
  Receipt Date: 20060309
  Transmission Date: 20060701
  Serious: Yes (Hospitalization, Disabling)
  Sender: FDA-Public Use
  Company Number: US-MERCK-0603USA02089

PATIENT
  Age: 49 Year
  Sex: Female
  Weight: 105 kg

DRUGS (2)
  1. VIOXX [Suspect]
     Indication: ARTHRITIS
     Route: 048
     Dates: start: 20000101, end: 20040101
  2. ANALGESIC OR ANESTHETIC (UNSPECIFIED) [Concomitant]
     Indication: NECK PAIN
     Route: 065

REACTIONS (4)
  - COMPLEX REGIONAL PAIN SYNDROME [None]
  - OVERDOSE [None]
  - SPINAL DISORDER [None]
  - THROMBOSIS [None]
